FAERS Safety Report 6386563-8 (Version None)
Quarter: 2009Q3

REPORT INFORMATION
  Report Type: 
  Country: None (occurrence: None)
  Receive Date: 20090930
  Receipt Date: 20090930
  Transmission Date: 20100115
  Serious: Yes (Hospitalization)
  Sender: FDA-Public Use
  Company Number: None

PATIENT
  Age: 60 Year
  Sex: Male

DRUGS (1)
  1. VANCOMYCIN [Suspect]
     Dosage: 1 GM ONCE IV
     Route: 042
     Dates: start: 20090312, end: 20090312

REACTIONS (2)
  - BRADYCARDIA [None]
  - HYPOTENSION [None]
